FAERS Safety Report 25619121 (Version 1)
Quarter: 2025Q3

REPORT INFORMATION
  Report Type: Spontaneous
  Country: US (occurrence: US)
  Receive Date: 20250729
  Receipt Date: 20250729
  Transmission Date: 20251021
  Serious: No
  Sender: IPSEN BIOPHARMACEUTICALS, INC.
  Company Number: US-IPSEN Group, Research and Development-2025-17860

PATIENT
  Sex: Female

DRUGS (2)
  1. IQIRVO [Suspect]
     Active Substance: ELAFIBRANOR
     Indication: Blood test abnormal
     Dates: start: 202505
  2. IQIRVO [Suspect]
     Active Substance: ELAFIBRANOR
     Indication: Product use in unapproved indication

REACTIONS (2)
  - Muscle spasms [Unknown]
  - Off label use [Unknown]
